FAERS Safety Report 11195190 (Version 2)
Quarter: 2017Q1

REPORT INFORMATION
  Report Type: Spontaneous
  Country: US (occurrence: US)
  Receive Date: 20150617
  Receipt Date: 20170222
  Transmission Date: 20170428
  Serious: Yes (Other)
  Sender: FDA-Public Use
  Company Number: US-ELI_LILLY_AND_COMPANY-US201506004808

PATIENT
  Sex: Female

DRUGS (7)
  1. METOPROLOL TARTRATE. [Concomitant]
     Active Substance: METOPROLOL TARTRATE
     Indication: PRODUCT USED FOR UNKNOWN INDICATION
     Dosage: 50 MG, BID
     Route: 048
  2. REMERON [Concomitant]
     Active Substance: MIRTAZAPINE
     Indication: PRODUCT USED FOR UNKNOWN INDICATION
     Dosage: 15 MG, EACH EVENING
     Route: 048
  3. ASPIRIN                            /00002701/ [Concomitant]
     Active Substance: ASPIRIN
     Indication: ANALGESIC THERAPY
     Dosage: 81 MG, QD
  4. TRAMADOL. [Concomitant]
     Active Substance: TRAMADOL
     Indication: PAIN
     Dosage: 50 MG, PRN
     Route: 048
  5. VISTARIL                           /00058402/ [Concomitant]
     Active Substance: HYDROXYZINE HYDROCHLORIDE
     Indication: PRODUCT USED FOR UNKNOWN INDICATION
     Dosage: 50 MG, QID
     Route: 048
  6. CYMBALTA [Suspect]
     Active Substance: DULOXETINE HYDROCHLORIDE
     Indication: PRODUCT USED FOR UNKNOWN INDICATION
     Dosage: UNK, UNKNOWN
     Route: 048
     Dates: start: 201312
  7. ZANTAC [Concomitant]
     Active Substance: RANITIDINE HYDROCHLORIDE
     Indication: DYSPEPSIA
     Dosage: 300 MG, PRN

REACTIONS (29)
  - Vertigo [Unknown]
  - Nausea [Unknown]
  - Diarrhoea [Unknown]
  - Dysphoria [Unknown]
  - Tinnitus [Unknown]
  - Mood swings [Unknown]
  - Dizziness [Unknown]
  - Hyperhidrosis [Unknown]
  - Lethargy [Unknown]
  - Anxiety [Unknown]
  - Suicide attempt [Unknown]
  - Arthralgia [Unknown]
  - Suicidal ideation [Unknown]
  - Hypomania [Unknown]
  - Tremor [Unknown]
  - Fatigue [Unknown]
  - Agitation [Unknown]
  - Vomiting [Unknown]
  - Confusional state [Unknown]
  - Hallucination [Unknown]
  - Dry mouth [Unknown]
  - Visual impairment [Unknown]
  - Nightmare [Unknown]
  - Paraesthesia [Unknown]
  - Insomnia [Unknown]
  - Drug withdrawal syndrome [Unknown]
  - Irritability [Unknown]
  - Seizure [Unknown]
  - Headache [Unknown]
